FAERS Safety Report 24622956 (Version 1)
Quarter: 2024Q4

REPORT INFORMATION
  Report Type: Spontaneous
  Country: US (occurrence: US)
  Receive Date: 20241115
  Receipt Date: 20241115
  Transmission Date: 20250115
  Serious: No
  Sender: NOVARTIS
  Company Number: US-002147023-NVSC2024US051690

PATIENT
  Sex: Female
  Weight: 86 kg

DRUGS (2)
  1. FABHALTA [Suspect]
     Active Substance: IPTACOPAN HYDROCHLORIDE
     Indication: Immune thrombocytopenia
     Dosage: 200 MG, BID
     Route: 048
     Dates: start: 20240214
  2. FABHALTA [Suspect]
     Active Substance: IPTACOPAN HYDROCHLORIDE
     Dosage: 200 MG, BID
     Route: 048

REACTIONS (4)
  - Wound [Unknown]
  - Anxiety [Unknown]
  - Headache [Unknown]
  - Product use in unapproved indication [Unknown]
